FAERS Safety Report 23103826 (Version 2)
Quarter: 2023Q4

REPORT INFORMATION
  Report Type: Report from Study
  Country: FR (occurrence: FR)
  Receive Date: 20231025
  Receipt Date: 20231027
  Transmission Date: 20240109
  Serious: Yes (Death)
  Sender: FDA-Public Use
  Company Number: FR-002147023-NVSC2023FR226810

PATIENT
  Age: 62 Year
  Sex: Female
  Weight: 38 kg

DRUGS (2)
  1. VOTRIENT [Suspect]
     Active Substance: PAZOPANIB HYDROCHLORIDE
     Indication: Soft tissue sarcoma
     Dosage: 100 MG, QD
     Route: 048
     Dates: start: 20230831, end: 20230929
  2. SIREMADLIN [Suspect]
     Active Substance: SIREMADLIN
     Indication: Soft tissue sarcoma
     Dosage: 200 MG, Q3W
     Route: 048
     Dates: start: 20230831, end: 20230922

REACTIONS (1)
  - Peritonitis [Fatal]

NARRATIVE: CASE EVENT DATE: 20231004
